FAERS Safety Report 7740345-0 (Version None)
Quarter: 2011Q3

REPORT INFORMATION
  Report Type: 
  Country: None (occurrence: None)
  Receive Date: 20110909
  Receipt Date: 20110905
  Transmission Date: 20111222
  Serious: Yes (Other)
  Sender: FDA-Public Use
  Company Number: LU-B.I. PHARMACEUTICALS,INC./RIDGEFIELD-2011-DE-04972GD

PATIENT
  Age: 51 Year
  Sex: Male

DRUGS (3)
  1. MIDAZOLAM HCL [Suspect]
     Indication: AGITATION
     Dosage: 2 MG
  2. DEMEROL [Suspect]
     Indication: CHILLS
     Route: 042
  3. CATAPRES [Suspect]

REACTIONS (1)
  - HYPOTENSION [None]
